FAERS Safety Report 6837669-8 (Version None)
Quarter: 2010Q3

REPORT INFORMATION
  Report Type: 
  Country: None (occurrence: None)
  Receive Date: 20100713
  Receipt Date: 20070518
  Transmission Date: 20110219
  Serious: No
  Sender: FDA-Public Use
  Company Number: US-PFIZER INC-2007040396

PATIENT
  Sex: Female
  Weight: 59.9 kg

DRUGS (7)
  1. CHANTIX [Suspect]
     Indication: SMOKING CESSATION THERAPY
     Dates: start: 20070514
  2. LEXAPRO [Concomitant]
  3. LAMICTAL [Concomitant]
  4. TRAZODONE HYDROCHLORIDE [Concomitant]
  5. MULTI-VITAMINS [Concomitant]
  6. NEURONTIN [Concomitant]
     Indication: NEUROPATHY PERIPHERAL
  7. NEURONTIN [Concomitant]
     Indication: INSOMNIA

REACTIONS (3)
  - DIZZINESS [None]
  - INSOMNIA [None]
  - NAUSEA [None]
